FAERS Safety Report 25751490 (Version 1)
Quarter: 2025Q3

REPORT INFORMATION
  Report Type: Spontaneous
  Country: US (occurrence: US)
  Receive Date: 20250902
  Receipt Date: 20250902
  Transmission Date: 20251021
  Serious: Yes (Other)
  Sender: NOVO NORDISK
  Company Number: US-NOVOPROD-1507215

PATIENT
  Sex: Female

DRUGS (2)
  1. NOVOLOG [Suspect]
     Active Substance: INSULIN ASPART
  2. NOVOLOG [Suspect]
     Active Substance: INSULIN ASPART
     Indication: Product used for unknown indication
     Route: 058

REACTIONS (8)
  - Colon cancer [Unknown]
  - Hepatic cancer [Unknown]
  - Neoplasm malignant [Unknown]
  - Memory impairment [Unknown]
  - Illness [Not Recovered/Not Resolved]
  - Ill-defined disorder [Unknown]
  - Wrong technique in product usage process [Unknown]
  - Product storage error [Unknown]
